FAERS Safety Report 15524254 (Version 1)
Quarter: 2018Q4

REPORT INFORMATION
  Report Type: Spontaneous
  Country: FR (occurrence: FR)
  Receive Date: 20181018
  Receipt Date: 20181018
  Transmission Date: 20190205
  Serious: Yes (Other)
  Sender: FDA-Public Use
  Company Number: FR-BIOVITRUM-2018FR1194

PATIENT
  Sex: Male

DRUGS (3)
  1. CORTICOSTEROIDS [Concomitant]
     Active Substance: CORTICOSTEROID NOS
     Indication: MEVALONATE KINASE DEFICIENCY
     Dates: start: 201606
  2. CORTICOSTEROIDS [Concomitant]
     Active Substance: CORTICOSTEROID NOS
     Dates: start: 201504, end: 2016
  3. KINERET [Suspect]
     Active Substance: ANAKINRA
     Indication: MEVALONATE KINASE DEFICIENCY
     Route: 058
     Dates: start: 201504, end: 201801

REACTIONS (3)
  - Injection site reaction [Unknown]
  - Retinal detachment [Unknown]
  - Off label use [Unknown]

NARRATIVE: CASE EVENT DATE: 2015
